FAERS Safety Report 8317403-5 (Version None)
Quarter: 2012Q2

REPORT INFORMATION
  Report Type: 
  Country: None (occurrence: None)
  Receive Date: 20120427
  Receipt Date: 20120418
  Transmission Date: 20120825
  Serious: Yes (Hospitalization)
  Sender: FDA-Public Use
  Company Number: CA-JNJFOC-20110706406

PATIENT
  Sex: Male
  Weight: 75 kg

DRUGS (8)
  1. REMICADE [Suspect]
     Route: 042
     Dates: start: 20100602
  2. REMICADE [Suspect]
     Route: 042
     Dates: start: 20100517
  3. MESALAMINE [Concomitant]
     Route: 065
  4. VITAMIN B-12 [Concomitant]
     Route: 065
  5. PREDNISONE [Concomitant]
     Route: 065
  6. CORTIFOAM [Concomitant]
     Route: 065
  7. REMICADE [Suspect]
     Indication: COLITIS ULCERATIVE
     Route: 042
     Dates: start: 20110712
  8. IRON [Concomitant]
     Route: 042
     Dates: start: 20100603

REACTIONS (5)
  - PALPITATIONS [None]
  - INFUSION RELATED REACTION [None]
  - TREMOR [None]
  - EMOTIONAL DISTRESS [None]
  - BACK PAIN [None]
